FAERS Safety Report 6432440-3 (Version None)
Quarter: 2009Q4

REPORT INFORMATION
  Report Type: 
  Country: None (occurrence: None)
  Receive Date: 20091109
  Receipt Date: 20091102
  Transmission Date: 20100525
  Serious: Yes (Hospitalization)
  Sender: FDA-Public Use
  Company Number: US-AMGEN-STX372204

PATIENT
  Sex: Male

DRUGS (6)
  1. SENSIPAR [Suspect]
     Indication: DRUG USE FOR UNKNOWN INDICATION
  2. DIGOXIN [Concomitant]
  3. MYAMBUTOL [Concomitant]
  4. LASIX [Concomitant]
  5. ISONIAZID [Concomitant]
  6. SYNTHROID [Concomitant]

REACTIONS (1)
  - HOSPITALISATION [None]
